FAERS Safety Report 12154227 (Version 1)
Quarter: 2016Q1

REPORT INFORMATION
  Report Type: Spontaneous
  Country: US (occurrence: None)
  Receive Date: 20160304
  Receipt Date: 20160304
  Transmission Date: 20160526
  Serious: No
  Sender: FDA-Public Use
  Company Number: None

PATIENT
  Sex: Female

DRUGS (1)
  1. GENERIC FOR PRED FORTE [Suspect]
     Active Substance: PREDNISOLONE ACETATE

REACTIONS (2)
  - Drug ineffective [None]
  - Headache [None]
